FAERS Safety Report 8839389 (Version 1)
Quarter: 2012Q4

REPORT INFORMATION
  Report Type: Spontaneous
  Country: US (occurrence: None)
  Receive Date: 20121012
  Receipt Date: 20121012
  Transmission Date: 20130627
  Serious: Yes (Other)
  Sender: FDA-Public Use
  Company Number: None

PATIENT
  Age: 51 Year
  Sex: Female
  Weight: 63.5 kg

DRUGS (1)
  1. LIALDA [Suspect]
     Route: 048
     Dates: start: 20120820, end: 20120910

REACTIONS (5)
  - Diarrhoea [None]
  - Condition aggravated [None]
  - Fatigue [None]
  - Anaemia [None]
  - Haematochezia [None]
